FAERS Safety Report 9883207 (Version 3)
Quarter: 2014Q2

REPORT INFORMATION
  Report Type: Spontaneous
  Country: FR (occurrence: FR)
  Receive Date: 20140208
  Receipt Date: 20140422
  Transmission Date: 20141212
  Serious: Yes (Hospitalization)
  Sender: FDA-Public Use
  Company Number: FR-MYLANLABS-2014S1001777

PATIENT
  Age: 5 Year
  Sex: Male
  Weight: 22.5 kg

DRUGS (4)
  1. CLARITHROMYCIN [Suspect]
     Indication: LUNG DISORDER
     Route: 048
     Dates: start: 20140122, end: 20140124
  2. VENTOLIN [Suspect]
     Indication: LUNG DISORDER
     Route: 055
     Dates: start: 20140121
  3. SERETIDE [Suspect]
     Indication: LUNG DISORDER
     Route: 055
     Dates: start: 20140121
  4. AERIUS [Suspect]
     Indication: LUNG DISORDER
     Route: 048
     Dates: start: 20140121

REACTIONS (5)
  - Malaise [Recovered/Resolved]
  - Dyspnoea [Recovered/Resolved]
  - Pallor [Recovered/Resolved]
  - Tongue discolouration [Recovered/Resolved]
  - Hypotension [Recovered/Resolved]
